FAERS Safety Report 20909739 (Version 2)
Quarter: 2022Q2

REPORT INFORMATION
  Report Type: Spontaneous
  Country: JP (occurrence: JP)
  Receive Date: 20220603
  Receipt Date: 20220617
  Transmission Date: 20220721
  Serious: Yes (Other)
  Sender: FDA-Public Use
  Company Number: JP-sptaiwan-2022SMP002471

PATIENT
  Age: 38 Year
  Sex: Female

DRUGS (1)
  1. LATUDA [Suspect]
     Active Substance: LURASIDONE HYDROCHLORIDE
     Indication: Neurosis
     Dosage: UNK
     Route: 048

REACTIONS (4)
  - Mental impairment [Unknown]
  - Headache [Unknown]
  - Tremor [Unknown]
  - Product use in unapproved indication [Unknown]
